FAERS Safety Report 17365207 (Version 3)
Quarter: 2020Q1

REPORT INFORMATION
  Report Type: Spontaneous
  Country: US (occurrence: US)
  Receive Date: 20200204
  Receipt Date: 20200311
  Transmission Date: 20200409
  Serious: Yes (Other)
  Sender: FDA-Public Use
  Company Number: US-GLAXOSMITHKLINE-US2019AMR239471

PATIENT
  Sex: Female

DRUGS (1)
  1. ACITRETIN CAPSULE [Suspect]
     Active Substance: ACITRETIN
     Indication: PSORIASIS
     Dosage: 25 MG, QD
     Route: 065
     Dates: start: 20190709, end: 201907

REACTIONS (10)
  - Diabetes mellitus [Unknown]
  - Madarosis [Unknown]
  - Lip exfoliation [Unknown]
  - Alopecia [Unknown]
  - Hyperhidrosis [Unknown]
  - Skin irritation [Unknown]
  - Glycosylated haemoglobin increased [Recovering/Resolving]
  - Pruritus [Unknown]
  - Skin exfoliation [Unknown]
  - Photosensitivity reaction [Unknown]
